FAERS Safety Report 4840427-7 (Version None)
Quarter: 2005Q4

REPORT INFORMATION
  Report Type: 
  Country: None (occurrence: None)
  Receive Date: 20051101
  Receipt Date: 20050824
  Transmission Date: 20060501
  Serious: No
  Sender: FDA-Public Use
  Company Number: MK200508-0306-1

PATIENT
  Age: 50 Year
  Sex: Female

DRUGS (5)
  1. NEUTROSPEC [Suspect]
     Indication: PYREXIA
     Dosage: 19.9 MCI, ONE TIME, IV
     Route: 042
     Dates: start: 20050818, end: 20050818
  2. INSULIN [Concomitant]
  3. ZANTAC [Concomitant]
  4. PEPCID [Concomitant]
  5. ANCEF [Concomitant]

REACTIONS (6)
  - DIZZINESS [None]
  - DYSPHAGIA [None]
  - HYPERHIDROSIS [None]
  - HYPOTENSION [None]
  - RASH [None]
  - TACHYCARDIA [None]
